FAERS Safety Report 4931773-7 (Version None)
Quarter: 2006Q1

REPORT INFORMATION
  Report Type: 
  Country: None (occurrence: None)
  Receive Date: 20060106
  Receipt Date: 20051119
  Transmission Date: 20060701
  Serious: No
  Sender: FDA-Public Use
  Company Number: 200512690BWH

PATIENT
  Sex: Male

DRUGS (1)
  1. LEVITRA [Suspect]
     Dosage: 10 MG, TOTAL DAILY, ORAL
     Route: 048

REACTIONS (1)
  - HEADACHE [None]
